FAERS Safety Report 20159352 (Version 1)
Quarter: 2021Q4

REPORT INFORMATION
  Report Type: Report from Study
  Country: US (occurrence: US)
  Receive Date: 20211208
  Receipt Date: 20211208
  Transmission Date: 20220303
  Serious: Yes (Other)
  Sender: FDA-Public Use
  Company Number: US-ABBVIE-21K-163-4130919-00

PATIENT
  Sex: Female

DRUGS (3)
  1. HUMIRA [Suspect]
     Active Substance: ADALIMUMAB
     Indication: Psoriasis
     Route: 058
     Dates: start: 20210427, end: 20210831
  2. HUMIRA [Suspect]
     Active Substance: ADALIMUMAB
     Route: 058
     Dates: start: 20211023
  3. CALCIUM [Concomitant]
     Active Substance: CALCIUM
     Indication: Blood calcium decreased

REACTIONS (6)
  - Intervertebral disc protrusion [Recovering/Resolving]
  - Nerve compression [Recovering/Resolving]
  - Dermal cyst [Recovering/Resolving]
  - Intervertebral disc calcification [Recovering/Resolving]
  - Hypoaesthesia [Recovered/Resolved]
  - Paraesthesia [Recovered/Resolved]

NARRATIVE: CASE EVENT DATE: 20210101
